FAERS Safety Report 4881894-2 (Version None)
Quarter: 2006Q1

REPORT INFORMATION
  Report Type: 
  Country: None (occurrence: None)
  Receive Date: 20060112
  Receipt Date: 20060104
  Transmission Date: 20060701
  Serious: Yes (Hospitalization)
  Sender: FDA-Public Use
  Company Number: CIP06000016

PATIENT
  Age: 54 Year
  Sex: Female

DRUGS (2)
  1. ACTONEL [Suspect]
     Dosage: 35 MG ONCE WEEKLY; ORAL
     Route: 048
  2. IBUPROFEN [Concomitant]

REACTIONS (1)
  - SMALL INTESTINAL HAEMORRHAGE [None]
